FAERS Safety Report 6416113-9 (Version None)
Quarter: 2009Q4

REPORT INFORMATION
  Report Type: 
  Country: None (occurrence: None)
  Receive Date: 20091027
  Receipt Date: 20091021
  Transmission Date: 20100525
  Serious: Yes (Other)
  Sender: FDA-Public Use
  Company Number: FR-MERCK-0907FRA00097

PATIENT
  Age: 58 Year
  Sex: Female

DRUGS (2)
  1. FOSAMAX PLUS D [Suspect]
     Indication: OSTEOPOROSIS
     Route: 048
     Dates: start: 20080901, end: 20090501
  2. CLORAZEPATE DIPOTASSIUM [Concomitant]
     Indication: ANXIETY
     Route: 048

REACTIONS (1)
  - LIP AND/OR ORAL CAVITY CANCER [None]
